FAERS Safety Report 11651927 (Version 1)
Quarter: 2015Q4

REPORT INFORMATION
  Report Type: Spontaneous
  Country: US (occurrence: US)
  Receive Date: 20151022
  Receipt Date: 20151022
  Transmission Date: 20160304
  Serious: No
  Sender: FDA-Public Use
  Company Number: US-TEVA-602482USA

PATIENT
  Sex: Male

DRUGS (1)
  1. PROVIGIL [Suspect]
     Active Substance: MODAFINIL
     Indication: PRODUCT USED FOR UNKNOWN INDICATION
     Dosage: FOR TWO WEEKS
     Route: 065

REACTIONS (10)
  - Movement disorder [Not Recovered/Not Resolved]
  - Cardiac disorder [Not Recovered/Not Resolved]
  - Muscular weakness [Unknown]
  - Pain in extremity [Not Recovered/Not Resolved]
  - Drug dispensing error [Unknown]
  - Hypertension [Not Recovered/Not Resolved]
  - Burning sensation [Unknown]
  - Coagulation time shortened [Not Recovered/Not Resolved]
  - Joint stiffness [Not Recovered/Not Resolved]
  - Myalgia [Not Recovered/Not Resolved]
